FAERS Safety Report 5936450-1 (Version None)
Quarter: 2008Q4

REPORT INFORMATION
  Report Type: 
  Country: None (occurrence: None)
  Receive Date: 20081030
  Receipt Date: 20081006
  Transmission Date: 20090506
  Serious: Yes (Hospitalization)
  Sender: FDA-Public Use
  Company Number: FR-CELGENEUS-TNZFR200800162

PATIENT
  Age: 65 Year
  Sex: Male

DRUGS (2)
  1. INNOHEP [Suspect]
     Indication: OFF LABEL USE
     Route: 058
     Dates: start: 20070101, end: 20070101
  2. CORDARONE [Concomitant]
     Indication: ARRHYTHMIA

REACTIONS (1)
  - CYTOLYTIC HEPATITIS [None]
